FAERS Safety Report 7390262-3 (Version None)
Quarter: 2011Q2

REPORT INFORMATION
  Report Type: 
  Country: None (occurrence: None)
  Receive Date: 20110401
  Receipt Date: 20110325
  Transmission Date: 20111010
  Serious: Yes (Hospitalization)
  Sender: FDA-Public Use
  Company Number: JP-CEPHALON-2011000317

PATIENT
  Sex: Male
  Weight: 59 kg

DRUGS (15)
  1. PREDNISOLONE [Concomitant]
     Dates: start: 20110112
  2. FAMOTIDINE [Concomitant]
  3. VALACYCLOVIR HCL [Concomitant]
     Dates: start: 20110105, end: 20110111
  4. FLUCONAZOLE [Concomitant]
     Dates: start: 20110115
  5. DEXAMETHASONE SODIUM PHOSPHATE [Concomitant]
     Dates: start: 20110104, end: 20110105
  6. METOCLOPRAMIDE [Concomitant]
     Dates: start: 20110108, end: 20110110
  7. PREDNISOLONE [Concomitant]
     Dates: start: 20110105
  8. BENDAMUSTINE HCL [Suspect]
     Indication: B-CELL LYMPHOMA
     Route: 042
     Dates: start: 20110104, end: 20110105
  9. ACETAMINOPHEN [Concomitant]
     Dates: start: 20110108, end: 20110108
  10. VIDARABINE [Concomitant]
     Dates: start: 20110105, end: 20110111
  11. PALONOSETRON HYDROCHLORIDE [Concomitant]
     Dates: start: 20110104, end: 20110104
  12. PREDNISOLONE SOLUTION [Concomitant]
     Dates: start: 20110108, end: 20110108
  13. SULFAMETHOXAZOLE AND TRIMETHOPRIM [Concomitant]
     Dates: start: 20110112
  14. DOMPERIDONE [Concomitant]
     Dates: start: 20110108, end: 20110110
  15. VALGANCICLOVIR [Concomitant]
     Dates: start: 20110128, end: 20110210

REACTIONS (8)
  - CYTOMEGALOVIRUS INFECTION [None]
  - GASTROENTERITIS [None]
  - DYSPNOEA [None]
  - PYREXIA [None]
  - PALPITATIONS [None]
  - PNEUMONIA [None]
  - HERPES VIRUS INFECTION [None]
  - ANGIOPATHY [None]
